FAERS Safety Report 24525116 (Version 1)
Quarter: 2024Q4

REPORT INFORMATION
  Report Type: Spontaneous
  Country: GB (occurrence: GB)
  Receive Date: 20241019
  Receipt Date: 20241019
  Transmission Date: 20250115
  Serious: Yes (Other)
  Sender: USV PRIVATE LIMITED
  Company Number: GB-MLMSERVICE-20241002-PI214492-00336-1

PATIENT
  Age: 34 Year
  Sex: Male

DRUGS (1)
  1. ZOLEDRONIC ACID [Suspect]
     Active Substance: ZOLEDRONIC ACID
     Indication: Progressive diaphyseal dysplasia
     Dates: start: 2020

REACTIONS (3)
  - C-telopeptide increased [Unknown]
  - Bone pain [Recovered/Resolved]
  - Off label use [Unknown]
